FAERS Safety Report 4658454-1 (Version None)
Quarter: 2005Q2

REPORT INFORMATION
  Report Type: 
  Country: None (occurrence: None)
  Receive Date: 20050510
  Receipt Date: 20050510
  Transmission Date: 20051028
  Serious: Yes (Hospitalization)
  Sender: FDA-Public Use
  Company Number: None

PATIENT
  Age: 64 Year
  Sex: Male
  Weight: 104.7809 kg

DRUGS (15)
  1. IRESSA [Suspect]
     Indication: COLON CANCER METASTATIC
     Dosage: 250 MG PO QD X 2WKS
     Route: 048
     Dates: start: 20040412, end: 20050505
  2. LEUCOVORIN CALCIUM [Suspect]
     Indication: COLON CANCER METASTATIC
     Dosage: 200 MG/M2 IV DAY 1 OF EACH CYCLE
     Route: 042
     Dates: start: 20040412, end: 20050505
  3. FLUOROURACIL [Suspect]
     Indication: COLON CANCER METASTATIC
     Dosage: 400 MG/M2, IV DAY 1
     Route: 042
     Dates: start: 20040412, end: 20050505
  4. FLUOROURACIL [Suspect]
     Indication: COLON CANCER METASTATIC
     Dosage: 2400 MG/M2, IV DAY 1- DAY 3
     Route: 042
     Dates: start: 20040412, end: 20050505
  5. AMBIEN [Concomitant]
  6. ATENOLOL [Concomitant]
  7. ATIVAN [Concomitant]
  8. CLEOCIN T [Concomitant]
  9. DYAZIDE [Concomitant]
  10. FOLIC ACID [Concomitant]
  11. FRAGMIN [Concomitant]
  12. LISINOPRIL [Concomitant]
  13. MULTI-VITAMIN [Concomitant]
  14. PEPCID AC [Concomitant]
  15. ZOFRAN [Concomitant]

REACTIONS (12)
  - ATROPHY [None]
  - BLOOD PRESSURE DECREASED [None]
  - DIARRHOEA [None]
  - DIZZINESS [None]
  - FAECAL OCCULT BLOOD POSITIVE [None]
  - FAECES DISCOLOURED [None]
  - GASTRITIS EROSIVE [None]
  - GASTROINTESTINAL MUCOSAL DISORDER [None]
  - NAUSEA [None]
  - REFLUX OESOPHAGITIS [None]
  - TACHYCARDIA [None]
  - VOMITING [None]
